FAERS Safety Report 20809992 (Version 3)
Quarter: 2022Q3

REPORT INFORMATION
  Report Type: Report from Study
  Country: US (occurrence: US)
  Receive Date: 20220510
  Receipt Date: 20220713
  Transmission Date: 20221027
  Serious: Yes (Hospitalization)
  Sender: FDA-Public Use
  Company Number: US-ALXN-A202205013

PATIENT
  Sex: Female

DRUGS (1)
  1. STRENSIQ [Suspect]
     Active Substance: ASFOTASE ALFA
     Indication: Hypophosphatasia
     Dosage: UNK
     Route: 065

REACTIONS (12)
  - Dizziness [Unknown]
  - Depression [Unknown]
  - Feeling abnormal [Unknown]
  - Chest pain [Unknown]
  - Panic attack [Unknown]
  - Vertigo [Unknown]
  - Head discomfort [Unknown]
  - Fatigue [Unknown]
  - Pain [Recovering/Resolving]
  - Pyrexia [Unknown]
  - Headache [Unknown]
  - Injection site pain [Unknown]
